FAERS Safety Report 7331364-7 (Version None)
Quarter: 2011Q1

REPORT INFORMATION
  Report Type: 
  Country: None (occurrence: None)
  Receive Date: 20110304
  Receipt Date: 20100827
  Transmission Date: 20110831
  Serious: Yes (Hospitalization)
  Sender: FDA-Public Use
  Company Number: US-BAYER-201024612NA

PATIENT
  Sex: Female
  Weight: 86.168 kg

DRUGS (9)
  1. CAPTOPRIL [Concomitant]
     Dosage: UNK
     Route: 048
     Dates: start: 20030602
  2. TRAZODONE [Concomitant]
     Dosage: 75 MG, UNK
  3. HYDROCHLOROTHIAZIDE [Concomitant]
  4. YAZ [Suspect]
     Indication: PRODUCT USED FOR UNKNOWN INDICATION
     Route: 048
     Dates: start: 20080201, end: 20080201
  5. PIROXICAM [Concomitant]
     Dosage: 20 MG, UNK
     Route: 048
  6. NAPROXEN [Concomitant]
     Indication: DYSMENORRHOEA
     Dosage: 500 MG, BID
  7. ALLEGRA [Concomitant]
     Dosage: UNK UNK, QD
  8. TRIAMTERENE [Concomitant]
     Dosage: UNK
     Dates: start: 20081030, end: 20091105
  9. DIAZIDE [Concomitant]
     Dosage: UNK UNK, QD

REACTIONS (5)
  - DEEP VEIN THROMBOSIS [None]
  - PAIN IN EXTREMITY [None]
  - PULMONARY EMBOLISM [None]
  - ARTHRALGIA [None]
  - DYSPNOEA [None]
